FAERS Safety Report 7921510-6 (Version None)
Quarter: 2011Q4

REPORT INFORMATION
  Report Type: 
  Country: None (occurrence: None)
  Receive Date: 20111117
  Receipt Date: 20110302
  Transmission Date: 20120403
  Serious: No
  Sender: FDA-Public Use
  Company Number: US-MYLANLABS-2011S1004413

PATIENT
  Age: 44 Year
  Sex: Female

DRUGS (4)
  1. MAXZIDE [Suspect]
     Indication: HYPERTENSION
     Dates: start: 20110101
  2. LEVOTHYROXINE SODIUM [Concomitant]
  3. SERTRALINE HYDROCHLORIDE [Concomitant]
  4. MAXZIDE [Suspect]
     Dates: start: 20110101

REACTIONS (1)
  - HYPOGLYCAEMIA [None]
